FAERS Safety Report 9379865 (Version 2)
Quarter: 2013Q3

REPORT INFORMATION
  Report Type: Spontaneous
  Country: US (occurrence: US)
  Receive Date: 20130702
  Receipt Date: 20130712
  Transmission Date: 20140515
  Serious: Yes (Other)
  Sender: FDA-Public Use
  Company Number: US-JNJFOC-20130616884

PATIENT
  Age: 31 Year
  Sex: Female
  Weight: 32.66 kg

DRUGS (2)
  1. XARELTO [Suspect]
     Indication: PULMONARY EMBOLISM
     Route: 048
     Dates: start: 20130623, end: 20130624
  2. COUMADIN [Suspect]
     Indication: PRODUCT USED FOR UNKNOWN INDICATION
     Dosage: DOSE: 7.5 (UNIT UNSPECIFIED)
     Route: 065

REACTIONS (1)
  - International normalised ratio increased [Not Recovered/Not Resolved]
